FAERS Safety Report 16539189 (Version 1)
Quarter: 2019Q3

REPORT INFORMATION
  Report Type: Spontaneous
  Country: US (occurrence: US)
  Receive Date: 20190708
  Receipt Date: 20190708
  Transmission Date: 20191004
  Serious: Yes (Hospitalization)
  Sender: FDA-Public Use
  Company Number: US-PERRIGO-19US007871

PATIENT
  Age: 51 Year
  Sex: Female

DRUGS (4)
  1. CALCIUM CHANNEL BLOCKERS AND DIURETICS [Concomitant]
     Indication: HYPERTENSION
  2. OMEPRAZOLE. [Concomitant]
     Active Substance: OMEPRAZOLE
     Indication: BARRETT^S OESOPHAGUS
     Dosage: UNKNOWN, UNKOWN
     Route: 048
  3. CALCIUM CHANNEL BLOCKERS AND DIURETICS [Concomitant]
     Indication: HYPERTENSION
     Dosage: UNKNOWN, UNKNOWN
     Route: 048
  4. MESALAZINE [Suspect]
     Active Substance: MESALAMINE
     Indication: COLITIS ULCERATIVE
     Dosage: 4.8 GRAMS, DAILY
     Route: 054

REACTIONS (3)
  - Acute kidney injury [Recovered/Resolved]
  - Incorrect product administration duration [Recovered/Resolved]
  - Tubulointerstitial nephritis [Recovered/Resolved]
